FAERS Safety Report 23349463 (Version 1)
Quarter: 2023Q4

REPORT INFORMATION
  Report Type: Spontaneous
  Country: US (occurrence: US)
  Receive Date: 20231229
  Receipt Date: 20231229
  Transmission Date: 20240109
  Serious: No
  Sender: FDA-Public Use
  Company Number: US-BRISTOL-MYERS SQUIBB COMPANY-2023-189281

PATIENT
  Age: 60 Year
  Sex: Female
  Weight: 100.7 kg

DRUGS (1)
  1. REVLIMID [Suspect]
     Active Substance: LENALIDOMIDE
     Indication: Follicle centre lymphoma diffuse small cell lymphoma
     Route: 048
     Dates: start: 20231101

REACTIONS (4)
  - Rash [Recovered/Resolved]
  - Muscle spasms [Unknown]
  - Back pain [Unknown]
  - Insomnia [Unknown]
